FAERS Safety Report 11854520 (Version 2)
Quarter: 2016Q1

REPORT INFORMATION
  Report Type: Spontaneous
  Country: US (occurrence: US)
  Receive Date: 20151221
  Receipt Date: 20160311
  Transmission Date: 20160526
  Serious: Yes (Hospitalization, Other)
  Sender: FDA-Public Use
  Company Number: US-ALEXION PHARMACEUTICALS INC-A201505105

PATIENT
  Sex: Female

DRUGS (1)
  1. SOLIRIS [Suspect]
     Active Substance: ECULIZUMAB
     Indication: HAEMOLYTIC URAEMIC SYNDROME
     Dosage: 1200 MG, Q12D
     Route: 042

REACTIONS (8)
  - Dehydration [Unknown]
  - Productive cough [Not Recovered/Not Resolved]
  - Nausea [Unknown]
  - Pneumonia [Not Recovered/Not Resolved]
  - Vomiting [Unknown]
  - Pyrexia [Unknown]
  - Sputum discoloured [Unknown]
  - Lung disorder [Unknown]

NARRATIVE: CASE EVENT DATE: 20151205
